FAERS Safety Report 5451507-X (Version None)
Quarter: 2007Q3

REPORT INFORMATION
  Report Type: 
  Country: None (occurrence: None)
  Receive Date: 20070913
  Receipt Date: 20070829
  Transmission Date: 20080115
  Serious: Yes (Hospitalization)
  Sender: FDA-Public Use
  Company Number: US-AMGEN-US241126

PATIENT
  Sex: Male

DRUGS (1)
  1. ENBREL [Suspect]
     Indication: PSORIATIC ARTHROPATHY
     Route: 058
     Dates: start: 20050401

REACTIONS (7)
  - CHEST PAIN [None]
  - CORONARY ARTERY BYPASS [None]
  - FALL [None]
  - JOINT SURGERY [None]
  - MUSCULOSKELETAL CHEST PAIN [None]
  - RASH [None]
  - TOE OPERATION [None]
